FAERS Safety Report 9411059 (Version 3)
Quarter: 2014Q1

REPORT INFORMATION
  Report Type: Spontaneous
  Country: US (occurrence: US)
  Receive Date: 20130720
  Receipt Date: 20140106
  Transmission Date: 20141002
  Serious: No
  Sender: FDA-Public Use
  Company Number: US-B.I. PHARMACEUTICALS,INC./RIDGEFIELD-2013-BI-20752BP

PATIENT
  Age: 63 Year
  Sex: Female
  Weight: 57 kg

DRUGS (2)
  1. COMBIVENT [Suspect]
     Indication: CHRONIC OBSTRUCTIVE PULMONARY DISEASE
     Dosage: STRENGTH: 20 MCG / 100 MCG; DAILY DOSE: 160MCG/800MCG
     Route: 055
     Dates: start: 201306
  2. COMBIVENT MDI [Concomitant]
     Indication: CHRONIC OBSTRUCTIVE PULMONARY DISEASE
     Dosage: (INHALATION AEROSOL) STRENGTH: 18MCG/103MCG; DAILY DOSE: 144MCG/824MCG
     Route: 055
     Dates: start: 2008, end: 201305

REACTIONS (2)
  - Drug prescribing error [Not Recovered/Not Resolved]
  - Product quality issue [Unknown]
